FAERS Safety Report 17359445 (Version 3)
Quarter: 2020Q1

REPORT INFORMATION
  Report Type: Spontaneous
  Country: US (occurrence: US)
  Receive Date: 20200203
  Receipt Date: 20200319
  Transmission Date: 20200409
  Serious: Yes (Hospitalization, Other)
  Sender: FDA-Public Use
  Company Number: US-UNITED THERAPEUTICS-UNT-2020-001438

PATIENT
  Age: 60 Year
  Sex: Female
  Weight: 73.47 kg

DRUGS (3)
  1. REMODULIN [Suspect]
     Active Substance: TREPROSTINIL
     Indication: PULMONARY ARTERIAL HYPERTENSION
     Dosage: 0.120 ?G/KG, CONTINUING
     Route: 058
     Dates: start: 20140220
  2. ADEMPAS [Concomitant]
     Active Substance: RIOCIGUAT
     Indication: PRODUCT USED FOR UNKNOWN INDICATION
     Dosage: UNK
     Route: 065
  3. OPSUMIT [Concomitant]
     Active Substance: MACITENTAN
     Indication: PRODUCT USED FOR UNKNOWN INDICATION
     Dosage: UNK
     Route: 065

REACTIONS (15)
  - Vomiting [Unknown]
  - Back pain [Unknown]
  - Pancreatic carcinoma [Unknown]
  - Pancreatitis [Unknown]
  - Nausea [Unknown]
  - Diarrhoea [Unknown]
  - Pancreatic calcification [Unknown]
  - Infusion site pain [Unknown]
  - Infusion site urticaria [Unknown]
  - Pancreatic mass [Unknown]
  - Pancreatic cyst [Unknown]
  - Abdominal pain upper [Unknown]
  - Infusion site extravasation [Unknown]
  - Dermatitis contact [Unknown]
  - Weight decreased [Unknown]

NARRATIVE: CASE EVENT DATE: 202001
